FAERS Safety Report 5410909-8 (Version None)
Quarter: 2007Q3

REPORT INFORMATION
  Report Type: 
  Country: None (occurrence: None)
  Receive Date: 20070809
  Receipt Date: 20070809
  Transmission Date: 20080115
  Serious: Yes (Hospitalization, Other)
  Sender: FDA-Public Use
  Company Number: None

PATIENT
  Age: 49 Year
  Sex: Female
  Weight: 85.4 kg

DRUGS (6)
  1. CETUXIMAB [Suspect]
     Indication: BREAST CANCER METASTATIC
     Dosage: 500 MG WEEKLY IV
     Route: 042
     Dates: start: 20070726
  2. CETUXIMAB [Suspect]
     Indication: BREAST CANCER METASTATIC
     Dosage: 500 MG WEEKLY IV
     Route: 042
     Dates: start: 20070802
  3. CARBOPLATIN [Suspect]
     Dosage: 332 MG WEEKLY IV
     Route: 042
     Dates: start: 20070726
  4. CARBOPLATIN [Suspect]
     Dosage: 332 MG WEEKLY IV
     Route: 042
     Dates: start: 20070802
  5. AMILORIDE HCL AND HYDROCHLOROTHIAZIDE [Concomitant]
  6. MS CONTIN [Concomitant]

REACTIONS (4)
  - ABDOMINAL PAIN [None]
  - DIARRHOEA [None]
  - NAUSEA [None]
  - VOMITING [None]
